FAERS Safety Report 6220307-5 (Version None)
Quarter: 2009Q2

REPORT INFORMATION
  Report Type: 
  Country: None (occurrence: None)
  Receive Date: 20090529
  Receipt Date: 20090518
  Transmission Date: 20091009
  Serious: Yes (Death, Other)
  Sender: FDA-Public Use
  Company Number: THYM-1001054

PATIENT
  Age: 13 Month

DRUGS (5)
  1. THYMOGLOBULIN [Suspect]
     Indication: STEM CELL TRANSPLANT
     Dates: start: 19980101
  2. BUSULFAN (BUSULFAN) [Suspect]
     Indication: STEM CELL TRANSPLANT
     Dates: start: 19980101
  3. CYCLOSPORINE [Suspect]
     Indication: GRAFT VERSUS HOST DISEASE
  4. CYCLOPHOSPHAMIDE [Suspect]
     Indication: STEM CELL TRANSPLANT
     Dates: start: 19980101
  5. METHOTREXATE [Suspect]
     Indication: GRAFT VERSUS HOST DISEASE

REACTIONS (2)
  - GRAFT VERSUS HOST DISEASE [None]
  - INFECTION [None]
